FAERS Safety Report 21089486 (Version 2)
Quarter: 2022Q4

REPORT INFORMATION
  Report Type: Spontaneous
  Country: US (occurrence: US)
  Receive Date: 20220715
  Receipt Date: 20221006
  Transmission Date: 20230113
  Serious: No
  Sender: FDA-Public Use
  Company Number: US-COLLEGIUM PHARMACEUTICAL, INC.-2021CGM01042

PATIENT
  Sex: Female
  Weight: 37.648 kg

DRUGS (6)
  1. NUCYNTA ER [Suspect]
     Active Substance: TAPENTADOL HYDROCHLORIDE
     Dosage: 50 MG
  2. NUCYNTA ER [Suspect]
     Active Substance: TAPENTADOL HYDROCHLORIDE
     Dosage: 100 MG
  3. NUCYNTA ER [Suspect]
     Active Substance: TAPENTADOL HYDROCHLORIDE
     Dosage: 150 MG
  4. NUCYNTA ER [Suspect]
     Active Substance: TAPENTADOL HYDROCHLORIDE
     Dosage: 200 MG, 2X/DAY (EVERY 12 HOURS)
     Dates: end: 2019
  5. XTAMPZA ER [Suspect]
     Active Substance: OXYCODONE
     Dosage: 18 MG, 2X/DAY (EVERY 12 HOURS)
  6. BELBUCA [Suspect]
     Active Substance: BUPRENORPHINE HYDROCHLORIDE

REACTIONS (6)
  - Tooth extraction [Not Recovered/Not Resolved]
  - Mastication disorder [Not Recovered/Not Resolved]
  - Visual impairment [Unknown]
  - Headache [Unknown]
  - Therapeutic response shortened [Unknown]
  - Intentional product use issue [Recovered/Resolved]
